FAERS Safety Report 21149650 (Version 1)
Quarter: 2022Q3

REPORT INFORMATION
  Report Type: Spontaneous
  Country: US (occurrence: None)
  Receive Date: 20220729
  Receipt Date: 20220729
  Transmission Date: 20221026
  Serious: Yes (Hospitalization, Other)
  Sender: FDA-Public Use
  Company Number: None

PATIENT
  Age: 37 Year
  Sex: Male
  Weight: 78.3 kg

DRUGS (5)
  1. CAPLYTA [Suspect]
     Active Substance: LUMATEPERONE
     Indication: Depression
     Dosage: FREQUENCY : DAILY;?
     Route: 048
     Dates: start: 20220727, end: 20220728
  2. LITHIUM [Concomitant]
     Active Substance: LITHIUM
  3. EMGALITY [Concomitant]
     Active Substance: GALCANEZUMAB-GNLM
  4. BENADRYL [Concomitant]
     Active Substance: DIPHENHYDRAMINE HYDROCHLORIDE
  5. OMEPRAZOLE [Concomitant]
     Active Substance: OMEPRAZOLE

REACTIONS (7)
  - Oesophageal disorder [None]
  - Sensation of foreign body [None]
  - Derealisation [None]
  - Anxiety [None]
  - Insomnia [None]
  - Temperature intolerance [None]
  - Gait disturbance [None]

NARRATIVE: CASE EVENT DATE: 20220727
